FAERS Safety Report 9371077 (Version 3)
Quarter: 2013Q3

REPORT INFORMATION
  Report Type: Spontaneous
  Country: JP (occurrence: JP)
  Receive Date: 20130627
  Receipt Date: 20130822
  Transmission Date: 20140515
  Serious: Yes (Hospitalization)
  Sender: FDA-Public Use
  Company Number: JP-B.I. PHARMACEUTICALS,INC./RIDGEFIELD-2013-BI-13411GD

PATIENT
  Age: 61 Year
  Sex: Female
  Weight: 54 kg

DRUGS (9)
  1. SIFROL [Suspect]
     Indication: PARKINSON^S DISEASE
     Dosage: 1.5 MG
     Route: 048
     Dates: start: 200704, end: 20121101
  2. SYMMETREL [Concomitant]
     Indication: PARKINSON^S DISEASE
     Dosage: 100 MG
     Route: 048
     Dates: start: 20060516
  3. OPALMON [Concomitant]
     Indication: BACK PAIN
     Dosage: 15 MCG
     Route: 048
  4. NEUROTROPIN [Concomitant]
     Indication: BACK PAIN
     Dosage: 12 U
     Route: 048
  5. ARTANE [Concomitant]
     Indication: PARKINSON^S DISEASE
     Dosage: 6 MG
     Route: 048
  6. ALMARL [Concomitant]
     Indication: PARKINSON^S DISEASE
     Dosage: 20 MG
     Route: 048
  7. LIPITOR [Concomitant]
     Indication: HYPERLIPIDAEMIA
     Dosage: 10 MG
     Route: 048
  8. FP [Concomitant]
     Indication: PARKINSON^S DISEASE
     Dosage: 2.5 MG
     Route: 048
  9. CELECOX [Concomitant]
     Indication: BACK PAIN
     Dosage: 200 MG
     Route: 048

REACTIONS (2)
  - Camptocormia [Not Recovered/Not Resolved]
  - Back pain [Not Recovered/Not Resolved]
